FAERS Safety Report 16289662 (Version 3)
Quarter: 2019Q2

REPORT INFORMATION
  Report Type: Report from Study
  Country: US (occurrence: US)
  Receive Date: 20190509
  Receipt Date: 20190529
  Transmission Date: 20190711
  Serious: Yes (Death, Hospitalization)
  Sender: FDA-Public Use
  Company Number: US-ROCHE-2311125

PATIENT
  Age: 69 Year
  Sex: Female
  Weight: 100.8 kg

DRUGS (5)
  1. OXYCODONE [Concomitant]
     Active Substance: OXYCODONE
     Route: 065
  2. CARBOPLATIN. [Suspect]
     Active Substance: CARBOPLATIN
     Indication: TRIPLE NEGATIVE BREAST CANCER
     Dosage: ON DAY 1?ON 28/MAR/2019, SHE RECEIVED THE MOST RECENT DOSE OF CARBOPLATIN.
     Route: 042
  3. FENTANYL. [Concomitant]
     Active Substance: FENTANYL
     Dosage: PATCH
     Route: 065
  4. OXYCODONE [Concomitant]
     Active Substance: OXYCODONE
     Route: 065
  5. ATIVAN [Concomitant]
     Active Substance: LORAZEPAM

REACTIONS (12)
  - Mental status changes [Recovering/Resolving]
  - Thrombocytopenia [Unknown]
  - Dyspnoea [Unknown]
  - Metastases to meninges [Unknown]
  - Lymphocyte count decreased [Unknown]
  - Death [Fatal]
  - Renal injury [Unknown]
  - Asthenia [Unknown]
  - Dehydration [Unknown]
  - Aspartate aminotransferase increased [Unknown]
  - Sepsis [Unknown]
  - Lactic acidosis [Unknown]

NARRATIVE: CASE EVENT DATE: 20190428
